FAERS Safety Report 17161614 (Version 1)
Quarter: 2019Q4

REPORT INFORMATION
  Report Type: Spontaneous
  Country: US (occurrence: US)
  Receive Date: 20191217
  Receipt Date: 20191217
  Transmission Date: 20200122
  Serious: No
  Sender: FDA-Public Use
  Company Number: US-009507513-01080312

PATIENT
  Age: 42 Year
  Sex: Male

DRUGS (2)
  1. PROPECIA [Suspect]
     Active Substance: FINASTERIDE
     Indication: ALOPECIA
     Dosage: 1, 1 MG TABLET DAILY
     Route: 048
  2. PROPECIA [Suspect]
     Active Substance: FINASTERIDE
     Indication: ALOPECIA
     Dosage: 1 1MG TABLET DAILY
     Route: 048
     Dates: start: 1999

REACTIONS (4)
  - Alopecia [Unknown]
  - Product lot number issue [Unknown]
  - Drug ineffective [Not Recovered/Not Resolved]
  - Product expiration date issue [Unknown]

NARRATIVE: CASE EVENT DATE: 200106
